FAERS Safety Report 9859607 (Version 1)
Quarter: 2014Q1

REPORT INFORMATION
  Report Type: Spontaneous
  Country: US (occurrence: US)
  Receive Date: 20140131
  Receipt Date: 20140131
  Transmission Date: 20141002
  Serious: No
  Sender: FDA-Public Use
  Company Number: US-B.I. PHARMACEUTICALS,INC./RIDGEFIELD-2014-BI-02799BP

PATIENT
  Age: 84 Year
  Sex: Female
  Weight: 70 kg

DRUGS (4)
  1. ATROVENT INHALATION SOLUTION [Suspect]
     Indication: ASTHMA
     Dosage: 102 MCG
     Route: 055
     Dates: start: 2004
  2. FLONASE [Concomitant]
     Indication: ASTHMA
     Dosage: FORMULATION: NASAL SPRAY;STRENGTH: 2 SPRAYS EACH NOSTRIL; DAILY DOSE: 4 SPRAYS
     Route: 045
     Dates: start: 2004
  3. ADVAIR [Concomitant]
     Indication: ASTHMA
     Dosage: 2 PUF
     Route: 055
     Dates: start: 2004
  4. SPIRONOLACTONE [Concomitant]
     Indication: HYPERTENSION
     Dosage: 25 MG
     Route: 048
     Dates: start: 2013

REACTIONS (3)
  - Dizziness [Recovered/Resolved]
  - Palpitations [Recovered/Resolved]
  - Off label use [Unknown]
